FAERS Safety Report 21949281 (Version 1)
Quarter: 2023Q1

REPORT INFORMATION
  Report Type: Spontaneous
  Country: CZ (occurrence: CZ)
  Receive Date: 20230203
  Receipt Date: 20230203
  Transmission Date: 20230418
  Serious: Yes (Life-Threatening, Hospitalization, Other)
  Sender: FDA-Public Use
  Company Number: CZ-Accord-296037

PATIENT
  Age: 52 Year
  Sex: Female

DRUGS (2)
  1. OXALIPLATIN [Suspect]
     Active Substance: OXALIPLATIN
     Indication: Metastases to liver
     Dates: start: 201705
  2. CAPECITABINE [Concomitant]
     Active Substance: CAPECITABINE
     Indication: Metastases to liver
     Dates: start: 201411

REACTIONS (3)
  - Acute kidney injury [Recovered/Resolved]
  - Evans syndrome [Recovered/Resolved]
  - Liver function test increased [Recovering/Resolving]
